FAERS Safety Report 9274830 (Version 2)
Quarter: 2013Q2

REPORT INFORMATION
  Report Type: Spontaneous
  Country: VE (occurrence: None)
  Receive Date: 20130429
  Receipt Date: 20130520
  Transmission Date: 20140414
  Serious: No
  Sender: FDA-Public Use
  Company Number: 1304VEN013488

PATIENT
  Age: 45 Day
  Sex: Female
  Weight: 4.4 kg

DRUGS (1)
  1. CEDAX [Suspect]
     Indication: RESPIRATORY TRACT INFECTION
     Route: 048

REACTIONS (4)
  - Thrombocytopenic purpura [None]
  - Exposure during breast feeding [None]
  - Drug administered to patient of inappropriate age [None]
  - Haematoma [None]
